FAERS Safety Report 24153151 (Version 1)
Quarter: 2024Q3

REPORT INFORMATION
  Report Type: Report from Study
  Country: US (occurrence: US)
  Receive Date: 20240730
  Receipt Date: 20240730
  Transmission Date: 20241017
  Serious: Yes (Hospitalization, Other)
  Sender: ABBVIE
  Company Number: US-ABBVIE-5854799

PATIENT
  Sex: Female

DRUGS (1)
  1. IMBRUVICA [Suspect]
     Active Substance: IBRUTINIB
     Indication: Chronic lymphocytic leukaemia recurrent
     Route: 048
     Dates: start: 202201

REACTIONS (9)
  - Skin laceration [Unknown]
  - Fall [Unknown]
  - Heart rate decreased [Unknown]
  - Fall [Unknown]
  - Device breakage [Unknown]
  - Breast pain [Unknown]
  - Fluid retention [Unknown]
  - Asthenia [Unknown]
  - Fatigue [Unknown]

NARRATIVE: CASE EVENT DATE: 20240101
